FAERS Safety Report 21540906 (Version 1)
Quarter: 2022Q4

REPORT INFORMATION
  Report Type: Spontaneous
  Country: ES (occurrence: ES)
  Receive Date: 20221102
  Receipt Date: 20221102
  Transmission Date: 20230112
  Serious: Yes (Life-Threatening)
  Sender: FDA-Public Use
  Company Number: ES-DENTSPLY-2022SCDP000308

PATIENT
  Age: 52 Year
  Sex: Female

DRUGS (2)
  1. MEPIVACAINE [Suspect]
     Active Substance: MEPIVACAINE HYDROCHLORIDE
     Indication: Infiltration anaesthesia
     Dosage: 10 MILLILITER
  2. MIDAZOLAM [Concomitant]
     Active Substance: MIDAZOLAM
     Indication: Surgery
     Dosage: 1.5 MILLIGRAM

REACTIONS (2)
  - Vocal cord paralysis [Recovered/Resolved]
  - Off label use [Recovered/Resolved]
